FAERS Safety Report 5650720-6 (Version None)
Quarter: 2008Q1

REPORT INFORMATION
  Report Type: 
  Country: None (occurrence: None)
  Receive Date: 20080303
  Receipt Date: 20080214
  Transmission Date: 20080703
  Serious: Yes (Hospitalization)
  Sender: FDA-Public Use
  Company Number: 2008JP000732

PATIENT
  Age: 47 Year
  Sex: Male

DRUGS (5)
  1. PROGRAF [Suspect]
     Indication: RENAL TRANSPLANT
  2. SIMULECT [Concomitant]
  3. MYCOPHENOLATE MOFETIL [Concomitant]
  4. PREDNISOLONE [Concomitant]
  5. CYCLOSPORINE [Concomitant]

REACTIONS (7)
  - ABDOMINAL PAIN [None]
  - BLOOD PRESSURE SYSTOLIC INCREASED [None]
  - COMPLICATIONS OF TRANSPLANTED KIDNEY [None]
  - HAEMODIALYSIS [None]
  - RENAL ARTERY STENOSIS [None]
  - RENAL IMPAIRMENT [None]
  - THROMBOTIC MICROANGIOPATHY [None]
